FAERS Safety Report 6540150-7 (Version None)
Quarter: 2010Q1

REPORT INFORMATION
  Report Type: 
  Country: None (occurrence: None)
  Receive Date: 20100112
  Receipt Date: 20091228
  Transmission Date: 20100710
  Serious: Yes (Hospitalization)
  Sender: FDA-Public Use
  Company Number: 001818

PATIENT
  Sex: Female

DRUGS (4)
  1. VIMPAT [Suspect]
     Dosage: (200 MG BID)
     Dates: start: 20090501
  2. KEPPRA [Suspect]
     Dosage: (1000 MG BID)  EPIL
     Dates: end: 20090501
  3. PIRIBEDIL [Concomitant]
  4. LAMOTRIGINE [Concomitant]

REACTIONS (3)
  - CONVULSION [None]
  - DEPRESSION [None]
  - GASTRITIS [None]
